FAERS Safety Report 24948426 (Version 3)
Quarter: 2025Q1

REPORT INFORMATION
  Report Type: Spontaneous
  Country: JP (occurrence: JP)
  Receive Date: 20250210
  Receipt Date: 20250227
  Transmission Date: 20250408
  Serious: Yes (Other)
  Sender: LEO PHARM
  Company Number: JP-LEO Pharma-377431

PATIENT
  Sex: Male

DRUGS (1)
  1. ADBRY [Suspect]
     Active Substance: TRALOKINUMAB-LDRM
     Indication: Dermatitis atopic
     Route: 058
     Dates: start: 20241004, end: 20241219

REACTIONS (1)
  - Anaplastic large cell lymphoma T- and null-cell types [Recovering/Resolving]

NARRATIVE: CASE EVENT DATE: 20241219
